FAERS Safety Report 9233268 (Version 1)
Quarter: 2013Q2

REPORT INFORMATION
  Report Type: Spontaneous
  Country: US (occurrence: US)
  Receive Date: 20130416
  Receipt Date: 20130416
  Transmission Date: 20140414
  Serious: No
  Sender: FDA-Public Use
  Company Number: US-BANPHARM-20130707

PATIENT
  Age: 63 Year
  Sex: Female

DRUGS (4)
  1. ALEVE LIQUID GELS 220MG [Suspect]
     Indication: ANALGESIC THERAPY
     Dosage: 1 DF, PRN,
     Route: 048
     Dates: start: 2012
  2. THYROID PILL [Concomitant]
  3. METFORMIN [Concomitant]
  4. LANTUS [Concomitant]

REACTIONS (1)
  - Blood glucose increased [Not Recovered/Not Resolved]
